FAERS Safety Report 5629902-5 (Version None)
Quarter: 2008Q1

REPORT INFORMATION
  Report Type: 
  Country: None (occurrence: None)
  Receive Date: 20080218
  Receipt Date: 20080208
  Transmission Date: 20080703
  Serious: Yes (Death, Other)
  Sender: FDA-Public Use
  Company Number: IT-ELI_LILLY_AND_COMPANY-IT200802002856

PATIENT
  Age: 73 Year
  Sex: Female

DRUGS (4)
  1. GEMCITABINE HCL [Suspect]
     Indication: GLIOBLASTOMA MULTIFORME
     Dosage: 600 MG/M2 EVERY HOUR (10 MG/M2/MIN)
     Route: 042
  2. DEXAMETHASONE TAB [Concomitant]
     Indication: PROPHYLAXIS
     Dosage: 4 MG, UNKNOWN
     Route: 042
  3. METOCLOPRAMIDE [Concomitant]
     Indication: PROPHYLAXIS
     Dosage: 10 MG, UNKNOWN
     Route: 042
  4. RANITIDINE [Concomitant]
     Indication: PROPHYLAXIS
     Dosage: 50 MG, UNKNOWN
     Route: 042

REACTIONS (3)
  - BLOOD GLUCOSE INCREASED [None]
  - DRUG INTERACTION [None]
  - NEUROLOGICAL SYMPTOM [None]
